FAERS Safety Report 9515524 (Version 2)
Quarter: 2013Q4

REPORT INFORMATION
  Report Type: Report from Study
  Country: BR (occurrence: BR)
  Receive Date: 20130911
  Receipt Date: 20131009
  Transmission Date: 20140711
  Serious: Yes (Death)
  Sender: FDA-Public Use
  Company Number: PHHY2013BR099683

PATIENT
  Age: 101 Year
  Sex: Female

DRUGS (4)
  1. ACLASTA [Suspect]
     Indication: OSTEOPOROSIS
     Dosage: 5 MG
     Route: 042
     Dates: start: 2012
  2. DIGOXIN [Concomitant]
     Dosage: 1 DF, DAILY, MANY YEARS AGO
     Route: 048
  3. AMIRON [Concomitant]
     Dosage: 0.5 DF, DAILY, MANY YEARS AGO
     Route: 048
  4. CLONAZEPAM [Concomitant]
     Indication: INSOMNIA
     Dosage: 6 DRP, DAILY, 6 YEARS AGO
     Route: 048

REACTIONS (4)
  - Cold sweat [Fatal]
  - Malaise [Fatal]
  - Decreased appetite [Recovered/Resolved]
  - Somnolence [Recovered/Resolved]
